FAERS Safety Report 19972853 (Version 1)
Quarter: 2021Q4

REPORT INFORMATION
  Report Type: Spontaneous
  Country: US (occurrence: US)
  Receive Date: 20211019
  Receipt Date: 20211019
  Transmission Date: 20220303
  Serious: Yes (Hospitalization)
  Sender: FDA-Public Use
  Company Number: None

PATIENT
  Age: 65 Year
  Sex: Female
  Weight: 88.65 kg

DRUGS (6)
  1. VASOTEC [Suspect]
     Active Substance: ENALAPRIL MALEATE
     Indication: Hypertension
     Dosage: ?          QUANTITY:1 TABLET(S);
     Route: 048
  2. HCTZ 25 MG [Concomitant]
  3. LOSARTAN 75 MG [Concomitant]
  4. TOPRAL EX 25 MG [Concomitant]
  5. ASA EC 81 MG [Concomitant]
  6. EMERGEN-C IMMUNE PLUS [Concomitant]

REACTIONS (6)
  - Blood pressure increased [None]
  - Hypertensive crisis [None]
  - Product quality issue [None]
  - Drug ineffective [None]
  - Product formulation issue [None]
  - Product label issue [None]

NARRATIVE: CASE EVENT DATE: 20211016
